FAERS Safety Report 6358452-6 (Version None)
Quarter: 2009Q3

REPORT INFORMATION
  Report Type: 
  Country: None (occurrence: None)
  Receive Date: 20090916
  Receipt Date: 20090126
  Transmission Date: 20100115
  Serious: No
  Sender: FDA-Public Use
  Company Number: US-AMGEN-KDL330511

PATIENT
  Sex: Male

DRUGS (3)
  1. NEUPOGEN [Suspect]
     Indication: CHEMOTHERAPY
     Dates: start: 20090124
  2. ETOPOSIDE [Concomitant]
  3. IFOSFAMIDE [Concomitant]

REACTIONS (2)
  - BONE PAIN [None]
  - MYALGIA [None]
